FAERS Safety Report 12373717 (Version 1)
Quarter: 2016Q2

REPORT INFORMATION
  Report Type: Spontaneous
  Country: US (occurrence: US)
  Receive Date: 20160517
  Receipt Date: 20160517
  Transmission Date: 20160815
  Serious: No
  Sender: FDA-Public Use
  Company Number: US-ZYDUS-007768

PATIENT
  Age: 15 Year
  Sex: Male

DRUGS (1)
  1. TOPAMAX [Suspect]
     Active Substance: TOPIRAMATE
     Indication: SEIZURE

REACTIONS (3)
  - Change in sustained attention [Unknown]
  - Somnolence [Unknown]
  - Coordination abnormal [Unknown]
